FAERS Safety Report 13802058 (Version 1)
Quarter: 2017Q3

REPORT INFORMATION
  Report Type: Report from Study
  Country: US (occurrence: US)
  Receive Date: 20170727
  Receipt Date: 20170727
  Transmission Date: 20171127
  Serious: Yes (Death)
  Sender: FDA-Public Use
  Company Number: US-REGENERON PHARMACEUTICALS, INC.-2017-19060

PATIENT

DRUGS (2)
  1. EYLEA [Suspect]
     Active Substance: AFLIBERCEPT
     Dosage: 9 DOSES TOTAL LEFT EYE (OS)
     Dates: start: 20151218, end: 20170501
  2. EYLEA [Suspect]
     Active Substance: AFLIBERCEPT
     Indication: NEOVASCULAR AGE-RELATED MACULAR DEGENERATION
     Dosage: 21 DOSES TOTAL RIGHT EYE (OD)
     Dates: start: 20140708, end: 20170501

REACTIONS (1)
  - Cardiac disorder [Fatal]
